FAERS Safety Report 7361374 (Version 9)
Quarter: 2013Q1

REPORT INFORMATION
  Report Type: Spontaneous
  Country: US (occurrence: US)
  Receive Date: 20100421
  Receipt Date: 20130313
  Transmission Date: 20140127
  Serious: Yes (Death, Other)
  Sender: FDA-Public Use
  Company Number: US-BAYER-201019522NA

PATIENT
  Age: 57 Year
  Sex: Female
  Weight: 101 kg

DRUGS (34)
  1. MAGNEVIST [Suspect]
     Indication: NUCLEAR MAGNETIC RESONANCE IMAGING
     Dosage: UNK UNK, ONCE
     Route: 042
     Dates: start: 20040422, end: 20040422
  2. MAGNEVIST [Suspect]
     Indication: NUCLEAR MAGNETIC RESONANCE IMAGING
     Dosage: UNK, ONCE
     Dates: start: 20050405, end: 20050405
  3. MAGNEVIST [Suspect]
     Indication: NUCLEAR MAGNETIC RESONANCE IMAGING
     Dosage: UNK, ONCE
     Route: 042
     Dates: start: 20060201, end: 20060201
  4. MAGNEVIST [Suspect]
     Indication: NUCLEAR MAGNETIC RESONANCE IMAGING BRAIN
     Dosage: UNK, ONCE
     Route: 042
     Dates: start: 20060321, end: 20060321
  5. UNSPECIFIED GADOLINIUM BASED CONTRAST AGENT [Suspect]
     Indication: NUCLEAR MAGNETIC RESONANCE IMAGING
     Route: 042
     Dates: start: 20060321, end: 20060321
  6. UNSPECIFIED GADOLINIUM BASED CONTRAST AGENT [Suspect]
     Indication: NUCLEAR MAGNETIC RESONANCE IMAGING BRAIN
     Dosage: UNK UNK, ONCE
     Dates: start: 20040422, end: 20040422
  7. UNSPECIFIED GADOLINIUM BASED CONTRAST AGENT [Suspect]
     Indication: NUCLEAR MAGNETIC RESONANCE IMAGING
     Dosage: UNK UNK, ONCE
     Dates: start: 20050405, end: 20050405
  8. UNSPECIFIED GADOLINIUM BASED CONTRAST AGENT [Suspect]
     Indication: NUCLEAR MAGNETIC RESONANCE IMAGING
     Dosage: UNK UNK, ONCE
     Route: 042
     Dates: start: 20060201, end: 20060201
  9. UNSPECIFIED GADOLINIUM BASED CONTRAST AGENT [Suspect]
     Indication: NUCLEAR MAGNETIC RESONANCE IMAGING ABDOMINAL
     Dosage: UNK, ONCE
     Route: 042
     Dates: start: 20070108, end: 20070108
  10. UNSPECIFIED GADOLINIUM BASED CONTRAST AGENT [Suspect]
     Indication: NUCLEAR MAGNETIC RESONANCE IMAGING BRAIN
  11. OMNISCAN [Suspect]
     Indication: ANGIOGRAM
     Route: 042
  12. OMNISCAN [Suspect]
     Indication: NUCLEAR MAGNETIC RESONANCE IMAGING
  13. OPTIMARK [Suspect]
     Indication: ANGIOGRAM
     Route: 042
  14. OPTIMARK [Suspect]
     Indication: NUCLEAR MAGNETIC RESONANCE IMAGING
  15. MULTIHANCE [GADOBENIC ACID MEGLUMINE] [Suspect]
     Indication: ANGIOGRAM
     Route: 042
  16. MULTIHANCE [GADOBENIC ACID MEGLUMINE] [Suspect]
     Indication: NUCLEAR MAGNETIC RESONANCE IMAGING
  17. PROHANCE [GADOTERIDOL] [Suspect]
     Indication: ANGIOGRAM
     Route: 042
  18. PROHANCE [GADOTERIDOL] [Suspect]
     Indication: NUCLEAR MAGNETIC RESONANCE IMAGING
  19. RENAGEL [SEVELAMER] [Concomitant]
  20. LANTUS [Concomitant]
  21. NOVOLOG [Concomitant]
  22. PHOSLO [Concomitant]
  23. FOSRENOL [Concomitant]
  24. NEURONTIN [Concomitant]
  25. HYDROCODONE [Concomitant]
  26. PHENYTEK [Concomitant]
  27. DILANTIN [Concomitant]
  28. ARANESP [Concomitant]
  29. ARIXTRA [Concomitant]
  30. COUMADIN [Concomitant]
  31. METOPROLOL [Concomitant]
  32. LORAZEPAM [Concomitant]
  33. LEVETIRACETAM [Concomitant]
  34. PLAVIX [Concomitant]

REACTIONS (18)
  - Nephrogenic systemic fibrosis [Not Recovered/Not Resolved]
  - Pain [Not Recovered/Not Resolved]
  - Skin induration [Not Recovered/Not Resolved]
  - Skin plaque [Not Recovered/Not Resolved]
  - Joint range of motion decreased [Not Recovered/Not Resolved]
  - Skin discolouration [Not Recovered/Not Resolved]
  - Skin hypertrophy [Not Recovered/Not Resolved]
  - Skin tightness [Not Recovered/Not Resolved]
  - Skin swelling [Not Recovered/Not Resolved]
  - Muscular weakness [Not Recovered/Not Resolved]
  - Skin burning sensation [Not Recovered/Not Resolved]
  - Pruritus [Not Recovered/Not Resolved]
  - General physical health deterioration [Not Recovered/Not Resolved]
  - Skin fibrosis [Not Recovered/Not Resolved]
  - Erythema [Not Recovered/Not Resolved]
  - Oedema peripheral [Not Recovered/Not Resolved]
  - Mobility decreased [Not Recovered/Not Resolved]
  - Skin lesion [Not Recovered/Not Resolved]
